FAERS Safety Report 8118227-4 (Version None)
Quarter: 2012Q1

REPORT INFORMATION
  Report Type: 
  Country: None (occurrence: None)
  Receive Date: 20120201
  Receipt Date: 20120119
  Transmission Date: 20120608
  Serious: Yes (Hospitalization)
  Sender: FDA-Public Use
  Company Number: 1000024405

PATIENT
  Age: 90 Year
  Sex: Female

DRUGS (5)
  1. AMLODIPINE [Concomitant]
  2. ARICEPT D (DONEPEZIL HYDROCHLORIDE) (DONEPEZIL HYDROCHLORIDE) [Concomitant]
  3. MAGMITT (MAGNESIUM OXIDE) (MAGNESIUM OXIDE) [Concomitant]
  4. MEMANTINE HYDROCHLORIDE [Suspect]
     Indication: DEMENTIA ALZHEIMER'S TYPE
     Dosage: 5 MG (5 MG, 1 IN 1 D), ORAL
     Route: 048
     Dates: start: 20110814, end: 20110816
  5. FUROSEMIDE [Concomitant]

REACTIONS (10)
  - FIBRIN D DIMER INCREASED [None]
  - BLOOD UREA INCREASED [None]
  - HYPOXIA [None]
  - CARDIAC FAILURE CONGESTIVE [None]
  - HAEMATOCRIT DECREASED [None]
  - BLOOD SODIUM DECREASED [None]
  - PULMONARY EMBOLISM [None]
  - SOMNOLENCE [None]
  - BLOOD GLUCOSE INCREASED [None]
  - HAEMOGLOBIN DECREASED [None]
